FAERS Safety Report 4989292-8 (Version None)
Quarter: 2006Q2

REPORT INFORMATION
  Report Type: 
  Country: None (occurrence: None)
  Receive Date: 20060425
  Receipt Date: 20060412
  Transmission Date: 20061013
  Serious: Yes (Other)
  Sender: FDA-Public Use
  Company Number: 2005172162

PATIENT
  Sex: Female

DRUGS (4)
  1. CADUET [Suspect]
     Indication: HYPERTENSION
     Dosage: 5/10 MG (1 IN 1 D)
     Dates: start: 20040901, end: 20051201
  2. LIPITOR [Suspect]
     Indication: BLOOD CHOLESTEROL INCREASED
     Dosage: 10 MG (10 MG, 1 IN 1 D)
     Dates: start: 19990101, end: 20040101
  3. NORVASC [Suspect]
     Indication: HYPERTENSION
     Dosage: 5 MG (5MG, 1 IN 1 D)
     Dates: start: 20000101
  4. ALL OTHER THERAPEUTIC PRODUCTS [Concomitant]

REACTIONS (5)
  - ALANINE AMINOTRANSFERASE INCREASED [None]
  - ARTHRITIS [None]
  - ASPARTATE AMINOTRANSFERASE INCREASED [None]
  - CHONDROLYSIS [None]
  - HYPERTENSION [None]
